FAERS Safety Report 25224791 (Version 1)
Quarter: 2025Q2

REPORT INFORMATION
  Report Type: Spontaneous
  Country: PL (occurrence: PL)
  Receive Date: 20250422
  Receipt Date: 20250422
  Transmission Date: 20250716
  Serious: Yes (Life-Threatening)
  Sender: BOEHRINGER INGELHEIM
  Company Number: None

PATIENT
  Age: 37 Year
  Sex: Female
  Weight: 48 kg

DRUGS (2)
  1. TELMISARTAN [Suspect]
     Active Substance: TELMISARTAN
     Indication: Product used for unknown indication
     Dates: start: 20200909, end: 20200909
  2. NEBIVOLOL [Suspect]
     Active Substance: NEBIVOLOL
     Indication: Product used for unknown indication
     Dates: start: 20200909, end: 20200909

REACTIONS (2)
  - Bradycardia [Recovering/Resolving]
  - Suicide attempt [Recovering/Resolving]
